FAERS Safety Report 19735470 (Version 1)
Quarter: 2021Q3

REPORT INFORMATION
  Report Type: Spontaneous
  Country: IN (occurrence: IN)
  Receive Date: 20210823
  Receipt Date: 20210823
  Transmission Date: 20211014
  Serious: Yes (Death)
  Sender: FDA-Public Use
  Company Number: IN-PFIZER INC-2017497995

PATIENT
  Age: 79 Year
  Sex: Female

DRUGS (4)
  1. MACALVIT [ASCORBIC ACID] [Concomitant]
     Dosage: 500 MG, 1X/DAY
  2. FULVESTRANT. [Concomitant]
     Active Substance: FULVESTRANT
     Dosage: 500 MG, UNK
  3. BECOSULES [ASCORBIC ACID;VITAMIN B NOS] [Concomitant]
     Dosage: 1 DF, 1X/DAY
  4. PALBACE [Suspect]
     Active Substance: PALBOCICLIB
     Indication: BREAST CANCER METASTATIC
     Dosage: 125 MG, 1X/DAY
     Route: 048
     Dates: start: 20170913, end: 2017

REACTIONS (2)
  - Death [Fatal]
  - Platelet count decreased [Recovered/Resolved]

NARRATIVE: CASE EVENT DATE: 2017
